FAERS Safety Report 5745161-7 (Version None)
Quarter: 2008Q2

REPORT INFORMATION
  Report Type: 
  Country: None (occurrence: None)
  Receive Date: 20080521
  Receipt Date: 20080519
  Transmission Date: 20081010
  Serious: Yes (Other)
  Sender: FDA-Public Use
  Company Number: PHNU2008DE01820

PATIENT
  Age: 33 Year
  Sex: Female

DRUGS (3)
  1. CAFFEINE [Interacting]
     Dosage: BEVERAGES CONTAINING CAFFEINE
     Route: 048
  2. TRILEPTAL [Suspect]
     Dosage: 2 DF, BID
     Route: 048
     Dates: start: 20070101
  3. ALCOHOL [Interacting]
     Route: 048

REACTIONS (11)
  - BALANCE DISORDER [None]
  - BLOOD PRESSURE INCREASED [None]
  - BURNING SENSATION [None]
  - CARDIAC FLUTTER [None]
  - DRUG EFFECT INCREASED [None]
  - DRUG INTERACTION [None]
  - NAUSEA [None]
  - ORAL DISCOMFORT [None]
  - SPEECH DISORDER [None]
  - TACHYCARDIA [None]
  - VISUAL DISTURBANCE [None]
